FAERS Safety Report 5719953-4 (Version None)
Quarter: 2008Q2

REPORT INFORMATION
  Report Type: 
  Country: None (occurrence: None)
  Receive Date: 20080428
  Receipt Date: 20070424
  Transmission Date: 20081010
  Serious: No
  Sender: FDA-Public Use
  Company Number: US-AMGEN-US219448

PATIENT
  Sex: Female

DRUGS (4)
  1. SENSIPAR [Suspect]
     Indication: DRUG USE FOR UNKNOWN INDICATION
     Route: 065
     Dates: start: 20061201
  2. ACTONEL [Concomitant]
     Route: 065
  3. FORTEO [Concomitant]
     Route: 065
  4. FOSAMAX [Concomitant]
     Route: 065

REACTIONS (2)
  - ALOPECIA [None]
  - TOOTHACHE [None]
